FAERS Safety Report 6123101-9 (Version None)
Quarter: 2009Q1

REPORT INFORMATION
  Report Type: 
  Country: None (occurrence: None)
  Receive Date: 20090318
  Receipt Date: 20090306
  Transmission Date: 20090719
  Serious: Yes (Other)
  Sender: FDA-Public Use
  Company Number: US-AMGEN-STX337249

PATIENT
  Sex: Male

DRUGS (3)
  1. SENSIPAR [Suspect]
     Indication: HYPERPARATHYROIDISM SECONDARY
  2. ZEMPLAR [Concomitant]
     Route: 042
  3. PHOSLO [Concomitant]

REACTIONS (3)
  - DISCOMFORT [None]
  - MOBILITY DECREASED [None]
  - MUSCLE SPASMS [None]
